FAERS Safety Report 9377039 (Version 3)
Quarter: 2013Q3

REPORT INFORMATION
  Report Type: Spontaneous
  Country: US (occurrence: US)
  Receive Date: 20130701
  Receipt Date: 20130806
  Transmission Date: 20140515
  Serious: Yes (Hospitalization, Other)
  Sender: FDA-Public Use
  Company Number: US-PFIZER INC-2013190646

PATIENT
  Age: 92 Year
  Sex: Female
  Weight: 50.34 kg

DRUGS (2)
  1. CELEBREX [Suspect]
     Dosage: UNK
  2. TOVIAZ [Suspect]
     Dosage: UNK, 1X/DAY

REACTIONS (6)
  - Arthropathy [Recovering/Resolving]
  - Pneumonia [Unknown]
  - Chronic obstructive pulmonary disease [Unknown]
  - Urinary incontinence [Unknown]
  - Medical device complication [Unknown]
  - Insomnia [Unknown]
